FAERS Safety Report 9343157 (Version 2)
Quarter: 2013Q3

REPORT INFORMATION
  Report Type: Spontaneous
  Country: US (occurrence: US)
  Receive Date: 20130611
  Receipt Date: 20130802
  Transmission Date: 20140515
  Serious: Yes (Other)
  Sender: FDA-Public Use
  Company Number: CHPA2013US009410

PATIENT
  Sex: Female

DRUGS (10)
  1. MAALOX ANTACID TABLETS - UNKNOWN [Suspect]
     Indication: DYSPEPSIA
     Dosage: 2 DF, QID
     Route: 048
     Dates: start: 197201
  2. MAALOX ANTACID TABLETS - UNKNOWN [Suspect]
     Dosage: 2 DF, TID
     Route: 048
  3. MAALOX ANTACID TABLETS - UNKNOWN [Suspect]
     Dosage: 2 DF, BID
     Route: 048
     Dates: end: 1978
  4. MAALOX ANTACID/ANTIGAS MAX QDTABS ASST [Suspect]
     Indication: DYSPEPSIA
     Dosage: 1 TABLET 2 OR 3 TIMES PER DAY
     Route: 048
  5. BENTYL [Suspect]
     Indication: DYSPEPSIA
     Dosage: UNK, BID
     Route: 048
  6. MYLANTA (MAGNESIUM HYDROXIDE/ALUMINIUM HYDROXIDE) [Concomitant]
     Indication: DYSPEPSIA
     Dosage: UNK, UNK
     Dates: start: 197201
  7. VALIUM [Concomitant]
     Indication: INSOMNIA
     Dosage: 2.5 MG, BID
     Route: 048
  8. VITAMIIN C [Concomitant]
     Indication: SUPPLEMENTATION THERAPY
     Dosage: UNK, QD
     Route: 048
  9. VITAMIN D [Concomitant]
     Indication: SUPPLEMENTATION THERAPY
     Dosage: UNK, QD
     Route: 048
  10. CALCIUM [Concomitant]
     Indication: SUPPLEMENTATION THERAPY
     Dosage: UNK, QD
     Route: 048

REACTIONS (15)
  - Depression suicidal [Recovering/Resolving]
  - Gallbladder disorder [Unknown]
  - Abdominal pain upper [Recovering/Resolving]
  - Burnout syndrome [Recovering/Resolving]
  - Dysuria [Recovering/Resolving]
  - Chest pain [Recovering/Resolving]
  - Abdominal pain lower [Recovering/Resolving]
  - Asthenia [Not Recovered/Not Resolved]
  - Hypophagia [Not Recovered/Not Resolved]
  - Headache [Recovering/Resolving]
  - Weight decreased [Not Recovered/Not Resolved]
  - Constipation [Recovered/Resolved]
  - Activities of daily living impaired [Not Recovered/Not Resolved]
  - Disease recurrence [Recovered/Resolved]
  - Therapeutic response unexpected [Unknown]
